FAERS Safety Report 6906033-5 (Version None)
Quarter: 2010Q3

REPORT INFORMATION
  Report Type: 
  Country: None (occurrence: None)
  Receive Date: 20100804
  Receipt Date: 20100726
  Transmission Date: 20110219
  Serious: Yes (Other)
  Sender: FDA-Public Use
  Company Number: PHHY2009CA26093

PATIENT
  Sex: Female

DRUGS (3)
  1. SANDOSTATIN LAR [Suspect]
     Indication: ACROMEGALY
     Dosage: 20 MG, QMO
     Route: 030
     Dates: start: 20031217
  2. SANDOSTATIN LAR [Suspect]
     Dosage: 30 MG EVERY 4 WEEKS
     Route: 030
     Dates: start: 20031217
  3. SANDOSTATIN LAR [Suspect]
     Dosage: 20 MG, EVERY 4 WEEKS
     Route: 030
     Dates: start: 20031217, end: 20070412

REACTIONS (7)
  - ABDOMINAL DISTENSION [None]
  - BLOOD GROWTH HORMONE INCREASED [None]
  - BLOOD PRESSURE INCREASED [None]
  - NAUSEA [None]
  - PHOTOPSIA [None]
  - PITUITARY TUMOUR REMOVAL [None]
  - RESPIRATORY DISORDER [None]
